FAERS Safety Report 5734990-1 (Version None)
Quarter: 2008Q2

REPORT INFORMATION
  Report Type: 
  Country: None (occurrence: None)
  Receive Date: 20080508
  Receipt Date: 20080508
  Transmission Date: 20081010
  Serious: Yes (Life-Threatening)
  Sender: FDA-Public Use
  Company Number: None

PATIENT
  Age: 71 Year
  Sex: Male
  Weight: 74.8435 kg

DRUGS (1)
  1. ISOSORBIDE MONONITRATE [Suspect]
     Indication: ANGINA PECTORIS
     Dosage: 120MG  1/DAY  PO
     Route: 048
     Dates: start: 20070721, end: 20070814

REACTIONS (2)
  - ANGINA PECTORIS [None]
  - PHARMACEUTICAL PRODUCT COMPLAINT [None]
